FAERS Safety Report 6517496-1 (Version None)
Quarter: 2009Q4

REPORT INFORMATION
  Report Type: 
  Country: None (occurrence: None)
  Receive Date: 20091224
  Receipt Date: 20091218
  Transmission Date: 20100525
  Serious: Yes (Death)
  Sender: FDA-Public Use
  Company Number: BE-CELGENEUS-013-50794-09120197

PATIENT
  Sex: Male
  Weight: 76 kg

DRUGS (7)
  1. VIDAZA [Suspect]
     Indication: MYELODYSPLASTIC SYNDROME
     Route: 065
     Dates: start: 20090820, end: 20090826
  2. VIDAZA [Suspect]
     Route: 065
     Dates: start: 20090923, end: 20090929
  3. VIDAZA [Suspect]
     Route: 065
     Dates: start: 20091026, end: 20091101
  4. ALDACTAZINE [Concomitant]
     Indication: DRUG USE FOR UNKNOWN INDICATION
     Route: 065
  5. CIPROXIN [Concomitant]
     Indication: DRUG USE FOR UNKNOWN INDICATION
     Route: 065
     Dates: start: 20090820, end: 20091110
  6. DIFLUCAN [Concomitant]
     Indication: DRUG USE FOR UNKNOWN INDICATION
     Route: 065
     Dates: start: 20090820
  7. NESTROLAN [Concomitant]
     Indication: DRUG USE FOR UNKNOWN INDICATION
     Route: 065

REACTIONS (3)
  - BACTERAEMIA [None]
  - DISEASE PROGRESSION [None]
  - PANCYTOPENIA [None]
